FAERS Safety Report 4459343-8 (Version None)
Quarter: 2004Q3

REPORT INFORMATION
  Report Type: 
  Country: None (occurrence: None)
  Receive Date: 20040923
  Receipt Date: 20040915
  Transmission Date: 20050211
  Serious: Yes (Other)
  Sender: FDA-Public Use
  Company Number: AU-GDP-0411399

PATIENT
  Age: 76 Year
  Sex: Female
  Weight: 60 kg

DRUGS (8)
  1. ROZEX [Suspect]
     Indication: ROSACEA
  2. ACETAMINOPHEN W/ CODEINE [Concomitant]
  3. CELECOXIB [Concomitant]
  4. PRAVASTATIN SODIUM [Concomitant]
  5. ATENOLOL [Concomitant]
  6. RANITIDINE SODIUM [Concomitant]
  7. CALCITRIOL [Concomitant]
  8. CLOPIDOGREL HYDROGEN SULPHATE [Concomitant]

REACTIONS (1)
  - MALIGNANT MELANOMA [None]
